FAERS Safety Report 5313709-2 (Version None)
Quarter: 2007Q2

REPORT INFORMATION
  Report Type: 
  Country: None (occurrence: None)
  Receive Date: 20070425
  Receipt Date: 20070411
  Transmission Date: 20071010
  Serious: Yes (Hospitalization)
  Sender: FDA-Public Use
  Company Number: POMP-11021

PATIENT
  Age: 4 Year
  Sex: Male

DRUGS (7)
  1. MYOZYME [Suspect]
     Indication: GLYCOGEN STORAGE DISEASE TYPE II
     Dosage: 10 MG/KG Q2WKS IV
     Route: 042
     Dates: start: 20070323
  2. MYOZYME [Suspect]
     Indication: GLYCOGEN STORAGE DISEASE TYPE II
     Dosage: 6 MG/KG ONCE IV
     Route: 042
     Dates: start: 20070306, end: 20070306
  3. MYOZYME [Suspect]
     Indication: GLYCOGEN STORAGE DISEASE TYPE II
     Dosage: 6 MG/KG ONCE IV
     Route: 042
     Dates: start: 20070131, end: 20070131
  4. MYOZYME [Suspect]
     Indication: GLYCOGEN STORAGE DISEASE TYPE II
     Dosage: 20 MG/KG Q2WKS IV
     Route: 042
     Dates: start: 20060815, end: 20061017
  5. MYOZYME [Suspect]
     Indication: GLYCOGEN STORAGE DISEASE TYPE II
     Dosage: 20 MG/KG Q2 WKS IV
     Route: 042
     Dates: start: 20050629, end: 20060609
  6. MYOZYME [Suspect]
     Indication: GLYCOGEN STORAGE DISEASE TYPE II
     Dosage: 20 MG/KG Q2WKS IV
     Route: 042
     Dates: start: 20030925, end: 20050609
  7. MYOZYME [Suspect]

REACTIONS (3)
  - PNEUMONIA [None]
  - SKIN LESION [None]
  - TYPE III IMMUNE COMPLEX MEDIATED REACTION [None]
